FAERS Safety Report 8557542-7 (Version None)
Quarter: 2012Q3

REPORT INFORMATION
  Report Type: 
  Country: None (occurrence: None)
  Receive Date: 20120801
  Receipt Date: 20120726
  Transmission Date: 20120928
  Serious: Yes (Other)
  Sender: FDA-Public Use
  Company Number: GB-ROCHE-1090928

PATIENT
  Sex: Male
  Weight: 61.3 kg

DRUGS (17)
  1. MABTHERA [Suspect]
     Indication: B-CELL LYMPHOMA
     Dosage: LAST DOSE PRIOR TO SAE:09/JUL/2012
     Route: 042
     Dates: start: 20120502
  2. AMOXICILLIN [Concomitant]
     Dates: start: 20120703, end: 20120708
  3. ALLOPURINOL [Concomitant]
     Dates: start: 20120530, end: 20120606
  4. ONDANSETRON [Concomitant]
     Indication: VOMITING
     Dates: start: 20120530, end: 20120604
  5. AMOXICILLIN [Concomitant]
     Dates: start: 20120610, end: 20120614
  6. ENOXAPARIN [Concomitant]
     Indication: THROMBOSIS PROPHYLAXIS
     Dates: start: 20120609, end: 20120610
  7. QUININE SULFATE [Concomitant]
     Indication: MUSCLE SPASMS
     Dates: start: 20060427
  8. OPTIVE LUBRICANT EYE DROPS [Concomitant]
     Indication: DRY EYE
     Route: 050
     Dates: start: 20120201
  9. OMEPRAZOLE [Concomitant]
     Indication: PROPHYLAXIS AGAINST GASTROINTESTINAL ULCER
     Dates: start: 20110209
  10. LENOGRASTIM [Concomitant]
     Indication: NEUTROPENIA
     Dates: start: 20120703, end: 20120708
  11. MABTHERA [Suspect]
     Dosage: LAST DOSE PRIOR TO SAE:09/JUL/2012
     Route: 058
     Dates: start: 20120530
  12. COTRIM [Concomitant]
     Dates: start: 20120502
  13. AUGMENTIN '500' [Concomitant]
     Indication: LOWER RESPIRATORY TRACT INFECTION
     Dates: start: 20120604, end: 20120604
  14. AUGMENTIN '500' [Concomitant]
     Dates: start: 20120604, end: 20120608
  15. ACETAMINOPHEN AND CODEINE PHOSPHATE [Concomitant]
     Indication: PAIN
     Dosage: 30/500; 120MG/4G
     Dates: start: 20120326
  16. MABTHERA [Suspect]
     Dosage: LAST DOSE PRIOR TO SAE:09/JUL/2012; MAINTENANCE FOR 24 MONTHS
     Route: 058
     Dates: start: 20120709
  17. PIPERACILLIN AND TAZOBACTAM [Concomitant]
     Dates: start: 20120608, end: 20120610

REACTIONS (1)
  - INJECTION SITE ERYTHEMA [None]
